FAERS Safety Report 12682597 (Version 1)
Quarter: 2016Q3

REPORT INFORMATION
  Report Type: Spontaneous
  Country: NZ (occurrence: NZ)
  Receive Date: 20160825
  Receipt Date: 20160825
  Transmission Date: 20161109
  Serious: Yes (Hospitalization)
  Sender: FDA-Public Use
  Company Number: NZ-BAXTER-2016BAX041699

PATIENT
  Age: 50 Year
  Sex: Female

DRUGS (3)
  1. SODIUM CHLORIDE, 0.9%, SOLUTION FOR INFUSION [Suspect]
     Active Substance: SODIUM CHLORIDE
     Indication: MEDICATION DILUTION
     Route: 042
     Dates: start: 20160718, end: 20160801
  2. CISPLATIN DBL [Suspect]
     Active Substance: CISPLATIN
     Indication: TONSIL CANCER
     Route: 042
     Dates: start: 20160718, end: 20160801
  3. DOMPERIDONE [Suspect]
     Active Substance: DOMPERIDONE
     Indication: ANTIEMETIC SUPPORTIVE CARE
     Route: 048
     Dates: end: 20160801

REACTIONS (4)
  - Erythema [Recovered/Resolved]
  - Vomiting [Recovered/Resolved]
  - Rash pustular [Recovered/Resolved]
  - Pyrexia [Recovered/Resolved]

NARRATIVE: CASE EVENT DATE: 20160801
